FAERS Safety Report 4961692-1 (Version None)
Quarter: 2006Q2

REPORT INFORMATION
  Report Type: 
  Country: None (occurrence: None)
  Receive Date: 20060404
  Receipt Date: 20060320
  Transmission Date: 20061013
  Serious: Yes (Other)
  Sender: FDA-Public Use
  Company Number: DEWYE492321MAR06

PATIENT
  Age: 18 Year

DRUGS (2)
  1. ENBREL [Suspect]
     Indication: JUVENILE ARTHRITIS
     Dosage: UNKNOWN
     Route: 058
  2. UNKNOWN [Suspect]

REACTIONS (2)
  - HERPES ZOSTER [None]
  - NEURALGIA [None]
